FAERS Safety Report 23310983 (Version 1)
Quarter: 2023Q4

REPORT INFORMATION
  Report Type: Spontaneous
  Country: JP (occurrence: JP)
  Receive Date: 20231218
  Receipt Date: 20231218
  Transmission Date: 20240109
  Serious: Yes (Life-Threatening, Hospitalization, Other)
  Sender: FDA-Public Use
  Company Number: None

PATIENT
  Age: 66 Year
  Sex: Female

DRUGS (3)
  1. MYCOPHENOLATE MOFETIL [Suspect]
     Active Substance: MYCOPHENOLATE MOFETIL
     Indication: Acquired epidermolysis bullosa
     Dosage: 2 GRAM, QD (PER DAY)
     Route: 065
  2. PREDNISOLONE [Suspect]
     Active Substance: PREDNISOLONE
     Indication: Lymphangiectasia intestinal
     Dosage: 6 MILLIGRAM, QD (EVERY 1 DAY) (DAILY)
     Route: 065
  3. PREDNISOLONE [Suspect]
     Active Substance: PREDNISOLONE
     Indication: Acquired epidermolysis bullosa
     Dosage: 20 MILLIGRAM, QD (DAILY) (INCREASED DOSE)
     Route: 065

REACTIONS (4)
  - Colitis [Unknown]
  - Disseminated mycobacterium avium complex infection [Unknown]
  - Peritonitis [Unknown]
  - CD4 lymphocytes decreased [Recovering/Resolving]
